FAERS Safety Report 21168565 (Version 4)
Quarter: 2024Q3

REPORT INFORMATION
  Report Type: Report from Study
  Country: US (occurrence: US)
  Receive Date: 20220803
  Receipt Date: 20240806
  Transmission Date: 20241017
  Serious: No
  Sender: ROCHE
  Company Number: US-ROCHE-3153043

PATIENT
  Age: 67 Year
  Sex: Female

DRUGS (4)
  1. OCREVUS [Suspect]
     Active Substance: OCRELIZUMAB
     Indication: Multiple sclerosis
     Dosage: DOSAGE INFORMATION: LAST DOSE WAS TAKEN ON 02/JUL/2024
     Route: 042
     Dates: start: 20170925
  2. OCREVUS [Suspect]
     Active Substance: OCRELIZUMAB
     Route: 065
     Dates: start: 20240702
  3. PAXLOVID [Concomitant]
     Active Substance: NIRMATRELVIR\RITONAVIR
     Indication: COVID-19
     Dates: start: 2020
  4. TYSABRI [Concomitant]
     Active Substance: NATALIZUMAB

REACTIONS (2)
  - Memory impairment [Not Recovered/Not Resolved]
  - COVID-19 [Not Recovered/Not Resolved]
